FAERS Safety Report 23152544 (Version 1)
Quarter: 2023Q4

REPORT INFORMATION
  Report Type: Spontaneous
  Country: US (occurrence: US)
  Receive Date: 20231107
  Receipt Date: 20231107
  Transmission Date: 20240110
  Serious: Yes (Other)
  Sender: FDA-Public Use
  Company Number: US-GLAXOSMITHKLINE-US2023AMR151464

PATIENT

DRUGS (1)
  1. OJJAARA [Suspect]
     Active Substance: MOMELOTINIB DIHYDROCHLORIDE MONOHYDRATE
     Indication: Cardiac failure
     Dosage: UNK

REACTIONS (4)
  - Cardiac failure [Unknown]
  - Fatigue [Unknown]
  - Dyspnoea [Unknown]
  - Condition aggravated [Unknown]
